FAERS Safety Report 6257119-2 (Version None)
Quarter: 2009Q3

REPORT INFORMATION
  Report Type: 
  Country: None (occurrence: None)
  Receive Date: 20090706
  Receipt Date: 20090625
  Transmission Date: 20100115
  Serious: Yes (Death)
  Sender: FDA-Public Use
  Company Number: B0581866A

PATIENT
  Age: 50 Year
  Sex: Female

DRUGS (1)
  1. WELLBUTRIN [Suspect]
     Indication: DRUG USE FOR UNKNOWN INDICATION
     Dosage: 4200MG PER DAY
     Route: 048
     Dates: start: 20090624, end: 20090624

REACTIONS (2)
  - INTENTIONAL OVERDOSE [None]
  - MYOCARDIAL INFARCTION [None]
